FAERS Safety Report 5700817-7 (Version None)
Quarter: 2008Q2

REPORT INFORMATION
  Report Type: 
  Country: None (occurrence: None)
  Receive Date: 20080410
  Receipt Date: 20080403
  Transmission Date: 20081010
  Serious: Yes (Hospitalization)
  Sender: FDA-Public Use
  Company Number: US-GILEAD-2007-0011118

PATIENT
  Sex: Female
  Weight: 82.401 kg

DRUGS (12)
  1. AMBRISENTAN [Suspect]
     Indication: PULMONARY HYPERTENSION
     Route: 048
     Dates: start: 20061102
  2. AMBRISENTAN [Suspect]
     Route: 048
     Dates: start: 20051110, end: 20061101
  3. AMBRISENTAN [Suspect]
     Route: 048
     Dates: start: 20050906, end: 20051109
  4. SILDENAFIL CITRATE [Concomitant]
     Route: 048
     Dates: start: 20040420
  5. LEVOFLOXACIN [Concomitant]
     Route: 048
     Dates: start: 20070110
  6. METOLAZONE [Concomitant]
     Route: 048
     Dates: start: 20061212
  7. FUROSEMIDE [Concomitant]
     Route: 048
     Dates: start: 20040420
  8. METOPROLOL TARTRATE [Concomitant]
     Route: 048
     Dates: start: 20031001
  9. SIMVASTATIN [Concomitant]
     Route: 048
     Dates: start: 19960701
  10. SPIRONOLACTONE [Concomitant]
     Route: 048
     Dates: start: 20040501
  11. LEVOTHYROXINE SODIUM [Concomitant]
     Route: 048
     Dates: start: 20000901
  12. GLYBURIDE [Concomitant]
     Route: 048
     Dates: start: 20060427

REACTIONS (4)
  - DEHYDRATION [None]
  - HYPOKALAEMIA [None]
  - HYPONATRAEMIA [None]
  - ORTHOSTATIC HYPOTENSION [None]
